FAERS Safety Report 25185787 (Version 2)
Quarter: 2025Q2

REPORT INFORMATION
  Report Type: Spontaneous
  Country: BR (occurrence: BR)
  Receive Date: 20250410
  Receipt Date: 20250505
  Transmission Date: 20250716
  Serious: Yes (Other)
  Sender: ELI LILLY AND COMPANY
  Company Number: BR-ELI_LILLY_AND_COMPANY-BR202504002327

PATIENT
  Sex: Female

DRUGS (2)
  1. UNSPECIFIED INGREDIENT [Suspect]
     Active Substance: UNSPECIFIED INGREDIENT
     Indication: Glucose tolerance impaired
     Route: 065
  2. UNSPECIFIED INGREDIENT [Suspect]
     Active Substance: UNSPECIFIED INGREDIENT
     Indication: Weight control

REACTIONS (6)
  - Glaucoma [Unknown]
  - Vision blurred [Unknown]
  - Product tampering [Unknown]
  - Blood pressure increased [Unknown]
  - Injection site pain [Unknown]
  - Injection site erythema [Unknown]
